FAERS Safety Report 19948843 (Version 4)
Quarter: 2022Q1

REPORT INFORMATION
  Report Type: Spontaneous
  Country: US (occurrence: None)
  Receive Date: 20211012
  Receipt Date: 20220315
  Transmission Date: 20220423
  Serious: No
  Sender: FDA-Public Use
  Company Number: US-LAURUS-001136

PATIENT
  Age: 22 Year
  Sex: Female

DRUGS (4)
  1. EMTRICITABINE AND TENOFOVIR DISOPROXIL FUMARATE [Suspect]
     Active Substance: EMTRICITABINE\TENOFOVIR DISOPROXIL FUMARATE
     Indication: Prophylaxis against HIV infection
     Dosage: 01 COURSE, 500 MG/DAY
     Route: 048
     Dates: start: 20210430
  2. TENOFOVIR DISOPROXIL FUMARATE [Suspect]
     Active Substance: TENOFOVIR DISOPROXIL FUMARATE
     Indication: Prophylaxis against HIV infection
     Dosage: 01 COURSE
     Route: 048
     Dates: start: 20191011
  3. MEBENDAZOLE [Suspect]
     Active Substance: MEBENDAZOLE
     Indication: Product used for unknown indication
  4. LEVONORGESTREL [Suspect]
     Active Substance: LEVONORGESTREL
     Indication: Product used for unknown indication

REACTIONS (1)
  - Exposure during pregnancy [Unknown]
